FAERS Safety Report 5569012-9 (Version None)
Quarter: 2007Q4

REPORT INFORMATION
  Report Type: 
  Country: None (occurrence: None)
  Receive Date: 20071220
  Receipt Date: 20070820
  Transmission Date: 20080405
  Serious: No
  Sender: FDA-Public Use
  Company Number: A0650806A

PATIENT
  Age: 79 Year
  Sex: Male

DRUGS (4)
  1. AVODART [Suspect]
     Indication: BENIGN PROSTATIC HYPERPLASIA
     Dosage: .5MG PER DAY
     Route: 048
     Dates: start: 20060801, end: 20070101
  2. TRIAMTERENE [Concomitant]
  3. VERAPAMIL [Concomitant]
  4. PRAVACHOL [Concomitant]

REACTIONS (6)
  - ARTHRALGIA [None]
  - ARTHRITIS [None]
  - BREAST SWELLING [None]
  - DRUG INEFFECTIVE [None]
  - NIPPLE PAIN [None]
  - PAIN IN EXTREMITY [None]
